FAERS Safety Report 5933293-X (Version None)
Quarter: 2008Q4

REPORT INFORMATION
  Report Type: 
  Country: None (occurrence: None)
  Receive Date: 20081028
  Receipt Date: 20081022
  Transmission Date: 20090506
  Serious: No
  Sender: FDA-Public Use
  Company Number: US-B.I. PHARMACEUTICALS,INC./RIDGEFIELD-2008-BP-15255BP

PATIENT
  Sex: Male
  Weight: 96 kg

DRUGS (19)
  1. SPIRIVA [Suspect]
     Indication: CHRONIC OBSTRUCTIVE PULMONARY DISEASE
     Dosage: 18MCG
     Route: 055
     Dates: start: 20070705
  2. LIPITOR [Concomitant]
     Dosage: 40MG
  3. FELODIPINE [Concomitant]
     Indication: HYPERTENSION
     Dosage: 10MG
  4. ASPIRIN [Concomitant]
     Indication: CORONARY ARTERY DISEASE
  5. VALSARTAN [Concomitant]
     Indication: HYPERTENSION
     Dosage: 320MG
  6. METOPROLOL SUCCINATE [Concomitant]
     Indication: HYPERTENSION
  7. HYDROCHLOROTHIAZIDE [Concomitant]
     Indication: HYPERTENSION
     Dates: start: 20050201
  8. PANTOPRAZOLE SODIUM [Concomitant]
     Dosage: 40MG
  9. PLAVIX [Concomitant]
     Indication: POOR PERIPHERAL CIRCULATION
     Dosage: 75MG
  10. NITROGLYCERIN [Concomitant]
     Indication: CORONARY ARTERY DISEASE
  11. FOLIC ACID [Concomitant]
     Dosage: 1MG
  12. NITROLINGUAL [Concomitant]
  13. INSULIN NOVOLIN-NPH [Concomitant]
     Dates: start: 20020704
  14. PERCOCET [Concomitant]
  15. ASPIRIN [Concomitant]
     Dosage: 81MG
     Dates: start: 20031122
  16. ATROVENT [Concomitant]
     Dates: end: 20070705
  17. PROVENTIL [Concomitant]
  18. THERATEARS [Concomitant]
  19. NOVOLIN R [Concomitant]
     Dates: start: 20020704

REACTIONS (1)
  - URINARY RETENTION [None]
